FAERS Safety Report 9500294 (Version 1)
Quarter: 2013Q3

REPORT INFORMATION
  Report Type: Spontaneous
  Country: US (occurrence: US)
  Receive Date: 20130905
  Receipt Date: 20130905
  Transmission Date: 20140515
  Serious: Yes (Hospitalization, Other)
  Sender: FDA-Public Use
  Company Number: US-JNJFOC-20130814637

PATIENT
  Age: 19 Year
  Sex: Male

DRUGS (2)
  1. RISPERDAL M TAB [Suspect]
     Indication: PRODUCT USED FOR UNKNOWN INDICATION
     Dosage: FOR 2 YEARS
     Route: 065
  2. ABILIFY [Suspect]
     Indication: PRODUCT USED FOR UNKNOWN INDICATION
     Dosage: 10 YEARS PLUS
     Route: 065

REACTIONS (4)
  - Hospitalisation [Unknown]
  - Tardive dyskinesia [Unknown]
  - Dystonia [Unknown]
  - Impaired driving ability [Unknown]
